FAERS Safety Report 10523916 (Version 1)
Quarter: 2014Q4

REPORT INFORMATION
  Report Type: Spontaneous
  Country: US (occurrence: None)
  Receive Date: 20141014
  Receipt Date: 20141014
  Transmission Date: 20150528
  Serious: Yes (Death, Hospitalization)
  Sender: FDA-Public Use
  Company Number: None

PATIENT
  Age: 57 Year
  Sex: Female
  Weight: 62.4 kg

DRUGS (2)
  1. IDARUBICIN [Suspect]
     Active Substance: IDARUBICIN
     Dates: start: 20140924, end: 20140926
  2. CYTARABINE. [Suspect]
     Active Substance: CYTARABINE
     Dates: start: 20140924, end: 20140927

REACTIONS (5)
  - Cardiac arrest [None]
  - Haematemesis [None]
  - Abdominal pain [None]
  - Platelet count decreased [None]
  - Unresponsive to stimuli [None]

NARRATIVE: CASE EVENT DATE: 20141002
